FAERS Safety Report 6655744-8 (Version None)
Quarter: 2010Q1

REPORT INFORMATION
  Report Type: 
  Country: None (occurrence: None)
  Receive Date: 20100317
  Receipt Date: 20091223
  Transmission Date: 20100710
  Serious: No
  Sender: FDA-Public Use
  Company Number: DSA_42254_2009

PATIENT
  Sex: Female

DRUGS (6)
  1. XENAZINE [Suspect]
     Indication: HUNTINGTON'S CHOREA
     Dosage: 1/2 TABLET AM, 1 TABLET 3PM, AND 1/2 TABLET HS ORAL
     Route: 048
     Dates: start: 20090414
  2. CITALOPRAM HYDROBROMIDE [Concomitant]
  3. STOOL SOFTNER [Concomitant]
  4. VITAMIN TAB [Concomitant]
  5. ASPIRIN [Concomitant]
  6. NYSTATIN [Concomitant]

REACTIONS (3)
  - COUGH [None]
  - FLATULENCE [None]
  - TREMOR [None]
